FAERS Safety Report 20311231 (Version 2)
Quarter: 2024Q2

REPORT INFORMATION
  Report Type: Report from Study
  Country: BE (occurrence: BE)
  Receive Date: 20220107
  Receipt Date: 20240510
  Transmission Date: 20240716
  Serious: Yes (Hospitalization)
  Sender: FDA-Public Use
  Company Number: None

PATIENT
  Age: 61 Year
  Sex: Male
  Weight: 81.5 kg

DRUGS (9)
  1. BISOPROLOL FUMARATE\HYDROCHLOROTHIAZIDE [Suspect]
     Active Substance: BISOPROLOL FUMARATE\HYDROCHLOROTHIAZIDE
     Indication: Hypertension
     Dosage: 10/25 MG, BISOPROLOL FUMARATE/HYDROCHLOROTHIAZIDE
     Route: 048
     Dates: start: 20180523, end: 201811
  2. AXITINIB [Suspect]
     Active Substance: AXITINIB
     Indication: Glioblastoma
     Route: 065
     Dates: start: 20180314, end: 20181121
  3. HYDROCORTISONE [Concomitant]
     Active Substance: HYDROCORTISONE
     Indication: Brain oedema
     Dosage: UNK
     Route: 065
     Dates: start: 20180523
  4. PANTOMED [Concomitant]
     Indication: Gastrooesophageal reflux disease
     Dosage: UNK, PANTOMED [PANTOPRAZOLE SODIUM SESQUIHYDRATE]
     Route: 065
     Dates: start: 20180509
  5. VALPROATE SODIUM [Concomitant]
     Active Substance: VALPROATE SODIUM
     Indication: Seizure
     Dosage: UNK, DEPAKINE [VALPROIC ACID]
     Route: 065
     Dates: start: 20181010
  6. LIORESAL [Concomitant]
     Active Substance: BACLOFEN
     Indication: Muscle spasticity
     Dosage: UNK
     Route: 065
     Dates: start: 20180718
  7. AVELUMAB [Suspect]
     Active Substance: AVELUMAB
     Indication: Glioblastoma
     Dosage: DOSAGE TEXT: 10 MG/KG, QOW
     Route: 065
     Dates: start: 20180509, end: 20181107
  8. MIRABEGRON [Concomitant]
     Active Substance: MIRABEGRON
     Indication: Benign prostatic hyperplasia
     Dosage: UNK
     Route: 065
     Dates: start: 20180411
  9. TAMSULOSIN HYDROCHLORIDE [Concomitant]
     Active Substance: TAMSULOSIN HYDROCHLORIDE
     Indication: Benign prostatic hyperplasia
     Dosage: UNK, TAMSULOSINE [TAMSULOSIN]
     Route: 065
     Dates: start: 20180718

REACTIONS (1)
  - Acute kidney injury [Not Recovered/Not Resolved]

NARRATIVE: CASE EVENT DATE: 20181121
